FAERS Safety Report 5026152-0 (Version None)
Quarter: 2006Q2

REPORT INFORMATION
  Report Type: 
  Country: None (occurrence: None)
  Receive Date: 20060608
  Receipt Date: 19961114
  Transmission Date: 20061013
  Serious: Yes (Hospitalization)
  Sender: FDA-Public Use
  Company Number: 96-09-0072

PATIENT
  Age: 67 Year
  Sex: Male

DRUGS (6)
  1. ETHYOL [Suspect]
     Indication: THROMBOCYTOPENIA
     Dosage: INTRAVENOUS
     Route: 042
     Dates: start: 19960802, end: 19960802
  2. CARBOPLATIN [Suspect]
     Indication: MALIGNANT RESPIRATORY TRACT NEOPLASM
     Dosage: INTRAVENOUS
     Route: 042
     Dates: start: 19960802, end: 19960802
  3. MITOMYCIN [Suspect]
     Indication: MALIGNANT RESPIRATORY TRACT NEOPLASM
     Dosage: INTRAVENOUS
     Route: 042
     Dates: start: 19960802, end: 19960802
  4. VINDESINE [Suspect]
     Indication: MALIGNANT RESPIRATORY TRACT NEOPLASM
     Dosage: INTRAVENOUS
     Route: 042
     Dates: start: 19960802, end: 19960802
  5. DEXAMETHASONE TAB [Concomitant]
  6. GRANISETRON  HCL [Concomitant]

REACTIONS (4)
  - CARDIAC ARREST [None]
  - HYPOTENSION [None]
  - LOSS OF CONSCIOUSNESS [None]
  - RESPIRATORY ARREST [None]
